FAERS Safety Report 9548851 (Version 1)
Quarter: 2013Q3

REPORT INFORMATION
  Report Type: Spontaneous
  Country: US (occurrence: None)
  Receive Date: 20130724
  Receipt Date: 20130724
  Transmission Date: 20140515
  Serious: Yes (Hospitalization)
  Sender: FDA-Public Use
  Company Number: PHEH2012US018249

PATIENT
  Sex: 0

DRUGS (2)
  1. FANAPT [Suspect]
  2. TRAZODONE (TRAZODONE) [Concomitant]

REACTIONS (1)
  - Hypotension [None]
